FAERS Safety Report 5457332-8 (Version None)
Quarter: 2007Q3

REPORT INFORMATION
  Report Type: 
  Country: None (occurrence: None)
  Receive Date: 20070918
  Receipt Date: 20070712
  Transmission Date: 20080115
  Serious: No
  Sender: FDA-Public Use
  Company Number: US-ASTRAZENECA-2007UW03350

PATIENT
  Age: 24 Year
  Sex: Female
  Weight: 70.3 kg

DRUGS (9)
  1. SEROQUEL [Suspect]
     Indication: BIPOLAR DISORDER
     Route: 048
  2. LAMICTAL [Concomitant]
     Indication: BIPOLAR DISORDER
  3. LAMICTAL [Concomitant]
  4. WELLBUTRIN XL [Concomitant]
     Indication: BIPOLAR DISORDER
  5. VITAMIN E [Concomitant]
  6. CENTRUM [Concomitant]
     Dosage: 1 TABLET WITH FOOD
  7. LOESTRIN [Concomitant]
     Indication: CONTRACEPTION
  8. IRON [Concomitant]
  9. CLARITIN [Concomitant]
     Indication: SEASONAL ALLERGY

REACTIONS (1)
  - NASAL CONGESTION [None]
